FAERS Safety Report 4754303-1 (Version None)
Quarter: 2005Q3

REPORT INFORMATION
  Report Type: 
  Country: None (occurrence: None)
  Receive Date: 20050825
  Receipt Date: 20050825
  Transmission Date: 20060218
  Serious: Yes (Hospitalization)
  Sender: FDA-Public Use
  Company Number: None

PATIENT
  Sex: Female
  Weight: 110.6777 kg

DRUGS (5)
  1. DAPTOMYCIN 500 MG [Suspect]
     Indication: CELLULITIS
     Dosage: 450 MG IV QD
     Route: 042
     Dates: start: 20050819, end: 20050821
  2. DAPTOMYCIN 500 MG [Suspect]
     Indication: STAPHYLOCOCCAL INFECTION
     Dosage: 450 MG IV QD
     Route: 042
     Dates: start: 20050819, end: 20050821
  3. HEPARIN LOCK FLUSH [Concomitant]
  4. SODIUM CHLORIDE [Concomitant]
  5. . [Concomitant]

REACTIONS (1)
  - PAIN [None]
